FAERS Safety Report 16638858 (Version 2)
Quarter: 2019Q4

REPORT INFORMATION
  Report Type: Report from Study
  Country: GB (occurrence: GB)
  Receive Date: 20190726
  Receipt Date: 20191203
  Transmission Date: 20200122
  Serious: Yes (Death, Hospitalization)
  Sender: FDA-Public Use
  Company Number: GB-PFIZER INC-2019319291

PATIENT
  Sex: Male

DRUGS (3)
  1. BORTEZOMIB. [Suspect]
     Active Substance: BORTEZOMIB
     Dosage: 2.5 MG, CYCLIC (CYCLE 4, DAY1)
     Route: 058
  2. DEXAMETHASONE SODIUM PHOSPHATE. [Suspect]
     Active Substance: DEXAMETHASONE SODIUM PHOSPHATE
     Dosage: 10 MG, CYCLIC (CYCLE 4, DAYS 1 AND 2)
     Route: 065
  3. BENDAMUSTINE HYDROCHLORIDE. [Suspect]
     Active Substance: BENDAMUSTINE HYDROCHLORIDE
     Dosage: 55 MG, CYCLIC (CYCLE 4, DAY 1)
     Route: 042

REACTIONS (2)
  - Sepsis [Fatal]
  - Skin infection [Recovered/Resolved with Sequelae]

NARRATIVE: CASE EVENT DATE: 20190515
